FAERS Safety Report 9920842 (Version 4)
Quarter: 2014Q1

REPORT INFORMATION
  Report Type: Report from Study
  Country: TH (occurrence: TH)
  Receive Date: 20140225
  Receipt Date: 20140331
  Transmission Date: 20141002
  Serious: Yes (Hospitalization, Disabling)
  Sender: FDA-Public Use
  Company Number: TH-ROCHE-1223650

PATIENT
  Age: 55 Year
  Sex: Female
  Weight: 53 kg

DRUGS (12)
  1. OBINUTUZUMAB [Suspect]
     Indication: DIFFUSE LARGE B-CELL LYMPHOMA
     Dosage: DATE OF MOST RECENT:18/SEP/2012, LAST DOSE TAKEN: 250 ML, DOSE CONCENTRATION: 4MG/ML
     Route: 042
     Dates: start: 20120405
  2. CYCLOPHOSPHAMIDE [Suspect]
     Indication: DIFFUSE LARGE B-CELL LYMPHOMA
     Dosage: DATE OF MOST RECENT:18/SEP/2012, LAST DOSE:1222.5 MG
     Route: 042
     Dates: start: 20120405
  3. DOXORUBICIN [Suspect]
     Indication: DIFFUSE LARGE B-CELL LYMPHOMA
     Dosage: DATE OF MOST RECENT:18/SEP/2012, LAST DOSE:81.5 MG
     Route: 042
     Dates: start: 20120405
  4. VINCRISTINE [Suspect]
     Indication: DIFFUSE LARGE B-CELL LYMPHOMA
     Dosage: DATE OF MOST RECENT:18/SEP/2012, LAST DOSE:2 MG
     Route: 040
     Dates: start: 20120405
  5. PREDNISONE [Suspect]
     Indication: DIFFUSE LARGE B-CELL LYMPHOMA
     Dosage: DATE OF MOST RECENT:22/SEP/2012, LAST DOSE:100 MG
     Route: 048
     Dates: start: 20120405
  6. BACTRIM [Concomitant]
     Indication: INFECTION PROPHYLAXIS
     Route: 065
     Dates: start: 20120606
  7. DEXAMETHASONE [Concomitant]
     Indication: PREMEDICATION
     Route: 065
     Dates: start: 20120405
  8. PIRITON [Concomitant]
     Indication: PREMEDICATION
     Route: 065
     Dates: start: 20120405
  9. PARACETAMOL [Concomitant]
     Indication: PROPHYLAXIS
     Route: 065
     Dates: start: 20120405
  10. ONSIA [Concomitant]
     Indication: PREMEDICATION
     Route: 065
     Dates: start: 20120405
  11. CYPROHEPTADINE [Concomitant]
     Route: 065
     Dates: start: 20120405
  12. ACYCLOVIR [Concomitant]
     Indication: INFECTION PROPHYLAXIS
     Route: 065
     Dates: start: 20120606

REACTIONS (3)
  - Cytomegalovirus chorioretinitis [Recovered/Resolved with Sequelae]
  - Malnutrition [Recovered/Resolved]
  - Diarrhoea infectious [Recovered/Resolved]
